FAERS Safety Report 6382767-9 (Version None)
Quarter: 2009Q3

REPORT INFORMATION
  Report Type: 
  Country: None (occurrence: None)
  Receive Date: 20090928
  Receipt Date: 20090928
  Transmission Date: 20100115
  Serious: Yes (Other)
  Sender: FDA-Public Use
  Company Number: None

PATIENT
  Age: 40 Year
  Sex: Male
  Weight: 99.7913 kg

DRUGS (10)
  1. BUPROPION HCL [Suspect]
     Indication: MAJOR DEPRESSION
     Dosage: 450MG ONCE A DAY PO
     Route: 048
     Dates: start: 20090720, end: 20090923
  2. BUPROPION HCL [Suspect]
  3. VALIUM [Concomitant]
  4. KLONOPIN [Concomitant]
  5. GEODON [Concomitant]
  6. VISTARIL [Concomitant]
  7. LOPRESSOR [Concomitant]
  8. LANTUS [Concomitant]
  9. AMBIEN [Concomitant]
  10. PAXIL [Concomitant]

REACTIONS (3)
  - MICTURITION DISORDER [None]
  - NO THERAPEUTIC RESPONSE [None]
  - OEDEMA PERIPHERAL [None]
